FAERS Safety Report 11476485 (Version 1)
Quarter: 2015Q3

REPORT INFORMATION
  Report Type: Spontaneous
  Country: US (occurrence: US)
  Receive Date: 20150909
  Receipt Date: 20150909
  Transmission Date: 20151125
  Serious: No
  Sender: FDA-Public Use
  Company Number: US-BAYER-2015-410274

PATIENT
  Age: 7 Year
  Sex: Female
  Weight: 23.58 kg

DRUGS (3)
  1. CHILDREN CLARITIN ALLERGY [Suspect]
     Active Substance: LORATADINE
     Dosage: 20 DF, ONCE (ABOUT HALF BOTTLE)
     Route: 048
     Dates: start: 20150826, end: 20150826
  2. CHILDREN CLARITIN ALLERGY [Suspect]
     Active Substance: LORATADINE
     Dosage: UNK
     Route: 048
  3. DAILY VITAMINS [Concomitant]
     Dosage: UNK

REACTIONS (3)
  - Abdominal pain upper [Not Recovered/Not Resolved]
  - Accidental exposure to product by child [None]
  - Abdominal pain [None]

NARRATIVE: CASE EVENT DATE: 20150826
